FAERS Safety Report 9499219 (Version 1)
Quarter: 2013Q3

REPORT INFORMATION
  Report Type: Spontaneous
  Country: US (occurrence: US)
  Receive Date: 20130905
  Receipt Date: 20130905
  Transmission Date: 20140515
  Serious: No
  Sender: FDA-Public Use
  Company Number: US-BIOGENIDEC-2013BI072750

PATIENT
  Age: 59 Year
  Sex: Male

DRUGS (4)
  1. AVONEX [Suspect]
     Indication: MULTIPLE SCLEROSIS
     Route: 030
     Dates: start: 20110621
  2. AVONEX [Suspect]
     Indication: MULTIPLE SCLEROSIS
     Route: 030
     Dates: start: 20130802
  3. LEVAQUIN [Concomitant]
     Indication: PETROSITIS
  4. AMOXICILLIN [Concomitant]
     Indication: PETROSITIS
     Dates: start: 20130726

REACTIONS (2)
  - Urticaria [Not Recovered/Not Resolved]
  - Pruritus [Recovered/Resolved]
